FAERS Safety Report 17939436 (Version 2)
Quarter: 2021Q3

REPORT INFORMATION
  Report Type: Spontaneous
  Country: US (occurrence: US)
  Receive Date: 20200624
  Receipt Date: 20210716
  Transmission Date: 20211014
  Serious: Yes (Hospitalization)
  Sender: FDA-Public Use
  Company Number: US-PFIZER INC-2020243226

PATIENT
  Age: 66 Year
  Sex: Female
  Weight: 122.47 kg

DRUGS (1)
  1. XELJANZ XR [Suspect]
     Active Substance: TOFACITINIB CITRATE
     Indication: RHEUMATOID ARTHRITIS
     Dosage: 11 MG ONCE A DAY IN THE MORNING
     Route: 048

REACTIONS (7)
  - Pain [Unknown]
  - Cerebrospinal fluid leakage [Unknown]
  - Confusional state [Unknown]
  - Back pain [Unknown]
  - Gait inability [Unknown]
  - Memory impairment [Unknown]
  - Fall [Unknown]

NARRATIVE: CASE EVENT DATE: 20200607
